FAERS Safety Report 20062069 (Version 1)
Quarter: 2021Q4

REPORT INFORMATION
  Report Type: Spontaneous
  Country: SE (occurrence: SE)
  Receive Date: 20211112
  Receipt Date: 20211112
  Transmission Date: 20220303
  Serious: Yes (Hospitalization, Other)
  Sender: FDA-Public Use
  Company Number: SE-ABBVIE-21K-150-4158776-00

PATIENT
  Age: 22 Year
  Sex: Male

DRUGS (3)
  1. VALPROATE SODIUM [Suspect]
     Active Substance: VALPROATE SODIUM
     Indication: Product used for unknown indication
     Dosage: POSSIBLE TWO OF DEPAKINE
     Route: 048
     Dates: start: 20190807, end: 20190807
  2. PROMETHAZINE HYDROCHLORIDE [Suspect]
     Active Substance: PROMETHAZINE HYDROCHLORIDE
     Indication: Product used for unknown indication
     Route: 048
     Dates: start: 20190807, end: 20190807
  3. LEVOTHYROXINE SODIUM [Suspect]
     Active Substance: LEVOTHYROXINE SODIUM
     Indication: Product used for unknown indication
     Dosage: 10-20 X 25 MICROGRAM
     Route: 048
     Dates: start: 20190807, end: 20190807

REACTIONS (14)
  - Dysarthria [Unknown]
  - Tachypnoea [Unknown]
  - Akathisia [Unknown]
  - Daydreaming [Unknown]
  - Snoring [Unknown]
  - Urinary retention [Unknown]
  - Dry mouth [Unknown]
  - Tachycardia [Unknown]
  - Miosis [Unknown]
  - Agitation [Unknown]
  - Hallucination [Unknown]
  - Intentional self-injury [Unknown]
  - Intentional overdose [Unknown]
  - Somnolence [Unknown]

NARRATIVE: CASE EVENT DATE: 20190807
